FAERS Safety Report 18308870 (Version 1)
Quarter: 2020Q3

REPORT INFORMATION
  Report Type: Spontaneous
  Country: US (occurrence: US)
  Receive Date: 20200924
  Receipt Date: 20200924
  Transmission Date: 20201103
  Serious: No
  Sender: FDA-Public Use
  Company Number: US-PFIZER INC-2020367247

PATIENT
  Age: 78 Year
  Sex: Female
  Weight: 76.19 kg

DRUGS (2)
  1. GABAPENTIN. [Suspect]
     Active Substance: GABAPENTIN
     Dosage: UNK
  2. MONOSODIUM GLUTAMATE [Suspect]
     Active Substance: MONOSODIUM GLUTAMATE
     Dosage: UNK

REACTIONS (2)
  - Vertigo [Unknown]
  - Drug hypersensitivity [Unknown]
